FAERS Safety Report 6654169-9 (Version None)
Quarter: 2010Q1

REPORT INFORMATION
  Report Type: 
  Country: None (occurrence: None)
  Receive Date: 20100326
  Receipt Date: 20100317
  Transmission Date: 20100710
  Serious: Yes (Other)
  Sender: FDA-Public Use
  Company Number: AU-B.I. PHARMACEUTICALS,INC./RIDGEFIELD-2010-BP-03470YA

PATIENT
  Sex: Male

DRUGS (4)
  1. FLOMAXTRA XL (TAMSULOSIN) ORODISPERSABLE [Suspect]
     Indication: PROSTATITIS
     Route: 065
     Dates: start: 20100312, end: 20100313
  2. DESVENLAFAXIN (DESVENLAFAXIN) [Concomitant]
     Indication: DEPRESSION
     Dosage: 1000 MG
  3. ANTIBIOTICS [Concomitant]
     Indication: ACNE
  4. TESTOSTERONE UNDECANOATE (TESTOSTERONE UNDECANOATE) [Concomitant]
     Dates: start: 20100101

REACTIONS (11)
  - ABDOMINAL DISCOMFORT [None]
  - ABDOMINAL PAIN [None]
  - ABDOMINAL PAIN UPPER [None]
  - ANXIETY [None]
  - DIARRHOEA [None]
  - FEELING ABNORMAL [None]
  - INSOMNIA [None]
  - NIGHTMARE [None]
  - PANIC ATTACK [None]
  - POLLAKIURIA [None]
  - PSYCHOTIC DISORDER [None]
